FAERS Safety Report 12706506 (Version 4)
Quarter: 2016Q4

REPORT INFORMATION
  Report Type: Report from Study
  Country: BR (occurrence: BR)
  Receive Date: 20160901
  Receipt Date: 20161227
  Transmission Date: 20170207
  Serious: Yes (Other)
  Sender: FDA-Public Use
  Company Number: BR-JNJFOC-20160822995

PATIENT
  Age: 63 Year
  Sex: Female
  Weight: 57 kg

DRUGS (4)
  1. HYDROCHLOROTHIAZIDE. [Concomitant]
     Active Substance: HYDROCHLOROTHIAZIDE
     Indication: HYPERTENSION
     Route: 065
  2. METFORMIN [Concomitant]
     Active Substance: METFORMIN HYDROCHLORIDE
     Indication: GLUCOSE TOLERANCE IMPAIRED
     Route: 065
  3. SIMPONI [Suspect]
     Active Substance: GOLIMUMAB
     Indication: RHEUMATOID ARTHRITIS
     Route: 058
     Dates: start: 20140505
  4. ENALAPRIL [Concomitant]
     Active Substance: ENALAPRIL
     Indication: HYPERTENSION
     Route: 065

REACTIONS (13)
  - Lung disorder [Unknown]
  - Influenza [Unknown]
  - Infection [Unknown]
  - Nodule [Not Recovered/Not Resolved]
  - Underdose [Unknown]
  - Rheumatoid arthritis [Unknown]
  - Bronchiolitis [Unknown]
  - Accidental exposure to product [Unknown]
  - Emphysema [Unknown]
  - Spinal osteoarthritis [Unknown]
  - Hand deformity [Unknown]
  - Foot deformity [Unknown]
  - Complication associated with device [Unknown]

NARRATIVE: CASE EVENT DATE: 2016
